FAERS Safety Report 19983368 (Version 1)
Quarter: 2021Q4

REPORT INFORMATION
  Report Type: Spontaneous
  Country: US (occurrence: US)
  Receive Date: 20211021
  Receipt Date: 20211021
  Transmission Date: 20220303
  Serious: Yes (Other)
  Sender: FDA-Public Use
  Company Number: US-FRESENIUS KABI-FK202111344

PATIENT
  Age: 76 Year
  Sex: Male

DRUGS (4)
  1. CISPLATIN [Suspect]
     Active Substance: CISPLATIN
     Indication: Oesophageal adenocarcinoma recurrent
     Dosage: 4 MONTHS AGO
     Route: 065
  2. CISPLATIN [Suspect]
     Active Substance: CISPLATIN
     Indication: Metastases to peritoneum
  3. MITOMYCIN [Concomitant]
     Active Substance: MITOMYCIN
     Indication: Oesophageal adenocarcinoma recurrent
     Dosage: 4 MONTHS AGO
     Route: 065
  4. MITOMYCIN [Concomitant]
     Active Substance: MITOMYCIN
     Indication: Metastases to peritoneum

REACTIONS (1)
  - Diaphragm muscle weakness [Unknown]
